FAERS Safety Report 6524228-X (Version None)
Quarter: 2009Q4

REPORT INFORMATION
  Report Type: 
  Country: None (occurrence: None)
  Receive Date: 20091230
  Receipt Date: 20091230
  Transmission Date: 20100525
  Serious: Yes (Other)
  Sender: FDA-Public Use
  Company Number: None

PATIENT
  Sex: Female
  Weight: 68.9467 kg

DRUGS (2)
  1. VICODIN [Suspect]
     Indication: KNEE ARTHROPLASTY
     Dosage: 1-2 4-6 HRS
     Dates: start: 20091210
  2. VICODIN [Suspect]
     Indication: KNEE ARTHROPLASTY
     Dosage: 1-2 4-6 HRS
     Dates: start: 20091211

REACTIONS (5)
  - BLISTER [None]
  - BLOOD BLISTER [None]
  - DRUG HYPERSENSITIVITY [None]
  - FURUNCLE [None]
  - PRODUCT SUBSTITUTION ISSUE [None]
